FAERS Safety Report 7831273-0 (Version None)
Quarter: 2011Q4

REPORT INFORMATION
  Report Type: 
  Country: None (occurrence: None)
  Receive Date: 20111021
  Receipt Date: 20111020
  Transmission Date: 20120403
  Serious: Yes (Death)
  Sender: FDA-Public Use
  Company Number: US-ROCHE-1005999

PATIENT
  Age: 62 Year
  Sex: Female

DRUGS (3)
  1. AVASTIN [Suspect]
     Indication: COLORECTAL CANCER METASTATIC
  2. FLUOROURACIL [Concomitant]
  3. OXALIPLATIN [Concomitant]

REACTIONS (4)
  - ABSCESS [None]
  - DEATH [None]
  - GASTROINTESTINAL FISTULA [None]
  - GASTROINTESTINAL PERFORATION [None]
